FAERS Safety Report 8108440-4 (Version None)
Quarter: 2012Q1

REPORT INFORMATION
  Report Type: 
  Country: None (occurrence: None)
  Receive Date: 20120202
  Receipt Date: 20120130
  Transmission Date: 20120608
  Serious: Yes (Life-Threatening, Hospitalization)
  Sender: FDA-Public Use
  Company Number: PHHY2012TR008079

PATIENT
  Sex: Female
  Weight: 54 kg

DRUGS (1)
  1. EXFORGE [Suspect]
     Dosage: UNK
     Dates: start: 20120122

REACTIONS (6)
  - TACHYCARDIA [None]
  - SUICIDE ATTEMPT [None]
  - LEUKOCYTURIA [None]
  - HAEMATURIA [None]
  - HYPOTENSION [None]
  - BLOOD CREATININE INCREASED [None]
